FAERS Safety Report 17266526 (Version 1)
Quarter: 2020Q1

REPORT INFORMATION
  Report Type: Spontaneous
  Country: US (occurrence: US)
  Receive Date: 20200113
  Receipt Date: 20200113
  Transmission Date: 20200409
  Serious: Yes (Other)
  Sender: FDA-Public Use
  Company Number: None

PATIENT
  Age: 30 Year
  Sex: Female
  Weight: 78.75 kg

DRUGS (19)
  1. COMPAZINE [Suspect]
     Active Substance: PROCHLORPERAZINE MALEATE
     Indication: NAUSEA
     Route: 042
     Dates: start: 19820201, end: 19820202
  2. TUMERIC [Concomitant]
     Active Substance: HERBALS\TURMERIC
  3. SYNTHROID [Concomitant]
     Active Substance: LEVOTHYROXINE SODIUM
  4. CALCIUM [Concomitant]
     Active Substance: CALCIUM
  5. SIMVASTATIN. [Concomitant]
     Active Substance: SIMVASTATIN
  6. VITAMIN B-COMPLEX [Concomitant]
     Active Substance: DEXPANTHENOL\NIACINAMIDE\PYRIDOXINE HYDROCHLORIDE\RIBOFLAVIN 5^-PHOSPHATE SODIUM\THIAMINE HYDROCHLORIDE
  7. PERCOCET [Concomitant]
     Active Substance: ACETAMINOPHEN\OXYCODONE HYDROCHLORIDE
  8. ZOFRAN [Concomitant]
     Active Substance: ONDANSETRON HYDROCHLORIDE
  9. PRILOSEC [Concomitant]
     Active Substance: OMEPRAZOLE MAGNESIUM
  10. CURCUMIN [Concomitant]
     Active Substance: CURCUMIN
  11. ROBAXIN [Concomitant]
     Active Substance: METHOCARBAMOL
  12. ATIVAN [Concomitant]
     Active Substance: LORAZEPAM
  13. MS CONTIN [Concomitant]
     Active Substance: MORPHINE SULFATE
  14. VENTOLIN [Concomitant]
     Active Substance: ALBUTEROL SULFATE
  15. KLONOPIN [Concomitant]
     Active Substance: CLONAZEPAM
  16. HIPREX [Concomitant]
     Active Substance: METHENAMINE HIPPURATE
  17. VITAMIN D3 [Concomitant]
     Active Substance: CHOLECALCIFEROL
  18. LINZESS [Concomitant]
     Active Substance: LINACLOTIDE
  19. MELATONIN (FORMULATION UNKNOWN) (MELATONIN) [Concomitant]
     Active Substance: MELATONIN

REACTIONS (2)
  - Product complaint [None]
  - Tardive dyskinesia [None]

NARRATIVE: CASE EVENT DATE: 19820201
